FAERS Safety Report 8989730 (Version 1)
Quarter: 2012Q4

REPORT INFORMATION
  Report Type: 
  Country: US (occurrence: US)
  Receive Date: 20121228
  Receipt Date: 20121228
  Transmission Date: 20130627
  Serious: Yes (Hospitalization, Other)
  Sender: FDA-Public Use
  Company Number: US-JNJFOC-20121210962

PATIENT
  Age: 57 Year
  Sex: Male

DRUGS (2)
  1. ACETAMINOPHEN [Suspect]
     Route: 065
  2. ACETAMINOPHEN [Suspect]
     Indication: PRODUCT USED FOR UNKNOWN INDICATION
     Route: 065

REACTIONS (8)
  - Suicide attempt [Unknown]
  - Multi-organ failure [Unknown]
  - Transaminases increased [Unknown]
  - Acidosis [Unknown]
  - Toxicity to various agents [Unknown]
  - Confusional state [None]
  - Vomiting [None]
  - Fall [None]
